FAERS Safety Report 17080528 (Version 1)
Quarter: 2019Q4

REPORT INFORMATION
  Report Type: Report from Study
  Country: IT (occurrence: IT)
  Receive Date: 20191127
  Receipt Date: 20191127
  Transmission Date: 20200122
  Serious: Yes (Hospitalization)
  Sender: FDA-Public Use
  Company Number: IT-ACCORD-154948

PATIENT
  Age: 70 Year
  Sex: Female

DRUGS (7)
  1. LUVION (CANRENONE) [Suspect]
     Active Substance: CANRENONE
     Indication: CARDIAC FAILURE
     Dosage: STRENGTH: 50 MG
     Route: 048
  2. INDERAL [Concomitant]
     Active Substance: PROPRANOLOL HYDROCHLORIDE
     Indication: GASTROOESOPHAGEAL REFLUX DISEASE
     Route: 048
  3. LASIX [Interacting]
     Active Substance: FUROSEMIDE
     Indication: HYPERTENSION
     Dosage: STRENGTH: 25 MG
     Route: 048
     Dates: start: 20181124
  4. PRADAXA [Concomitant]
     Active Substance: DABIGATRAN ETEXILATE MESYLATE
     Indication: CARDIAC FAILURE
     Dosage: STRENGTH: 150 MG
     Route: 048
     Dates: start: 20181127
  5. RAMIPRIL. [Suspect]
     Active Substance: RAMIPRIL
     Indication: CARDIAC FAILURE
     Route: 048
     Dates: start: 20181128
  6. METOLAZONE. [Suspect]
     Active Substance: METOLAZONE
     Indication: CARDIAC FAILURE
     Route: 048
  7. TAPZOLE [Concomitant]
     Indication: HYPERTHYROIDISM
     Dosage: STRENGTH 5 MG
     Route: 048

REACTIONS (2)
  - Acute kidney injury [Recovered/Resolved with Sequelae]
  - Drug interaction [Unknown]

NARRATIVE: CASE EVENT DATE: 20190720
